FAERS Safety Report 7458022-2 (Version None)
Quarter: 2011Q2

REPORT INFORMATION
  Report Type: 
  Country: None (occurrence: None)
  Receive Date: 20110504
  Receipt Date: 20110428
  Transmission Date: 20111010
  Serious: Yes (Hospitalization)
  Sender: FDA-Public Use
  Company Number: FR-B.I. PHARMACEUTICALS,INC./RIDGEFIELD-2011-FF-00430FF

PATIENT
  Sex: Male

DRUGS (11)
  1. CASODEX [Suspect]
     Route: 048
  2. EZETIMIBE [Concomitant]
     Route: 048
  3. MECIR LP 0.4 [Suspect]
     Route: 048
  4. TRIATEC [Suspect]
     Route: 048
  5. ACEBUTOLOL [Suspect]
     Route: 048
  6. PRAVIGARD PAC (COPACKAGED) [Concomitant]
     Route: 048
  7. NEXIUM [Suspect]
     Route: 048
  8. PLAVIX [Concomitant]
     Route: 048
  9. DAFALGAN [Concomitant]
  10. NORDAZ [Suspect]
  11. LANTUS [Concomitant]

REACTIONS (7)
  - MALAISE [None]
  - LOSS OF CONSCIOUSNESS [None]
  - VISUAL IMPAIRMENT [None]
  - HEAD INJURY [None]
  - HEADACHE [None]
  - FALL [None]
  - ORTHOSTATIC HYPOTENSION [None]
